FAERS Safety Report 4719859-3 (Version None)
Quarter: 2005Q3

REPORT INFORMATION
  Report Type: 
  Country: None (occurrence: None)
  Receive Date: 20050721
  Receipt Date: 20041213
  Transmission Date: 20060218
  Serious: No
  Sender: FDA-Public Use
  Company Number: US-GLAXOSMITHKLINE-A0537150A

PATIENT
  Age: 78 Year
  Sex: Female

DRUGS (3)
  1. AVANDIA [Suspect]
     Route: 048
     Dates: start: 20040101
  2. LISINOPRIL [Concomitant]
     Dosage: 40MG TWICE PER DAY
  3. DIOVAN [Concomitant]

REACTIONS (4)
  - ABDOMINAL DISTENSION [None]
  - OEDEMA PERIPHERAL [None]
  - SWELLING FACE [None]
  - WEIGHT INCREASED [None]
